FAERS Safety Report 25422506 (Version 5)
Quarter: 2025Q4

REPORT INFORMATION
  Report Type: Report from Study
  Country: US (occurrence: US)
  Receive Date: 20250611
  Receipt Date: 20251013
  Transmission Date: 20260117
  Serious: Yes (Other)
  Sender: TAKEDA
  Company Number: US-TAKEDA-2025TUS037478

PATIENT
  Age: 50 Year
  Sex: Female

DRUGS (4)
  1. VEDOLIZUMAB [Suspect]
     Active Substance: VEDOLIZUMAB
     Indication: Colitis ulcerative
     Dosage: 300 MILLIGRAM
  2. VEDOLIZUMAB [Suspect]
     Active Substance: VEDOLIZUMAB
     Indication: Crohn^s disease
  3. VEDOLIZUMAB [Suspect]
     Active Substance: VEDOLIZUMAB
     Indication: Colitis ulcerative
     Dosage: 108 MILLIGRAM, Q2WEEKS
     Dates: start: 2018
  4. VEDOLIZUMAB [Suspect]
     Active Substance: VEDOLIZUMAB
     Indication: Crohn^s disease
     Dosage: 108 MILLIGRAM, Q2WEEKS
     Dates: start: 20250530

REACTIONS (14)
  - Crohn^s disease [Not Recovered/Not Resolved]
  - Clostridium difficile infection [Not Recovered/Not Resolved]
  - Injection site haemorrhage [Recovered/Resolved]
  - White coat hypertension [Unknown]
  - Anxiety [Not Recovered/Not Resolved]
  - Product dose omission issue [Unknown]
  - Inappropriate schedule of product administration [Unknown]
  - Depression [Not Recovered/Not Resolved]
  - Uterine enlargement [Not Recovered/Not Resolved]
  - Injection site pain [Recovered/Resolved]
  - Product distribution issue [Unknown]
  - Vaginal infection [Recovered/Resolved]
  - Urinary tract infection [Not Recovered/Not Resolved]
  - Fatigue [Not Recovered/Not Resolved]

NARRATIVE: CASE EVENT DATE: 20240701
